FAERS Safety Report 8553334-3 (Version None)
Quarter: 2012Q3

REPORT INFORMATION
  Report Type: 
  Country: None (occurrence: None)
  Receive Date: 20120731
  Receipt Date: 20120727
  Transmission Date: 20120928
  Serious: Yes (Death, Hospitalization)
  Sender: FDA-Public Use
  Company Number: GB-ROCHE-1079551

PATIENT
  Sex: Female

DRUGS (11)
  1. LANSOPRAZOLE [Concomitant]
     Route: 065
  2. SIMVASTATIN [Concomitant]
     Route: 065
  3. ASPIRIN [Concomitant]
     Route: 065
  4. BENDROFLUAZIDE [Concomitant]
     Route: 065
  5. LEVOTHYROXINE SODIUM [Concomitant]
     Route: 065
  6. LUCENTIS [Suspect]
     Indication: AGE-RELATED MACULAR DEGENERATION
     Route: 050
     Dates: start: 20110621
  7. AMLODIPINE [Concomitant]
     Route: 065
  8. DIPYRIDAMOLE [Concomitant]
     Route: 065
  9. DIAZEPAM TAB [Concomitant]
     Route: 065
  10. FOSINOPRIL SODIUM [Concomitant]
     Route: 065
  11. BISOPROLOL FUMARATE [Concomitant]
     Route: 065

REACTIONS (1)
  - CEREBROVASCULAR ACCIDENT [None]
